FAERS Safety Report 5537707-9 (Version None)
Quarter: 2007Q4

REPORT INFORMATION
  Report Type: 
  Country: None (occurrence: None)
  Receive Date: 20071207
  Receipt Date: 20071126
  Transmission Date: 20080405
  Serious: Yes (Other)
  Sender: FDA-Public Use
  Company Number: US-JNJFOC-20070804574

PATIENT
  Sex: Male
  Weight: 85.28 kg

DRUGS (15)
  1. DURAGESIC-100 [Suspect]
     Indication: TRIGEMINAL NEURALGIA
     Dosage: 100UG/HR EVERY 60 - 72 HOURS
     Route: 062
  2. DURAGESIC-100 [Suspect]
     Indication: PAIN
     Dosage: 2X 100UG/HR AND 1X 50UG/HR PATCHES
     Route: 062
  3. HYDROCODONE BITARTRATE [Concomitant]
     Dosage: 10-325
     Route: 065
  4. PREVACID [Concomitant]
     Indication: GASTROOESOPHAGEAL REFLUX DISEASE
     Route: 048
  5. BACLOFEN [Concomitant]
     Indication: NEURALGIA
     Route: 048
  6. PHENOBARBITAL TAB [Concomitant]
     Indication: NEURALGIA
     Route: 048
  7. PHENOBARBITAL TAB [Concomitant]
     Indication: CONVULSION
     Route: 048
  8. METHIMAZOLE [Concomitant]
     Indication: THYROID DISORDER
     Route: 048
  9. ALPRAZOLAM [Concomitant]
     Indication: NEURALGIA
     Route: 048
  10. PLAVIX [Concomitant]
     Indication: ANTICOAGULANT THERAPY
     Route: 048
  11. OXYCODONE HCL [Concomitant]
     Indication: PAIN MANAGEMENT
     Route: 048
  12. HYDROMORPHONE HCL [Concomitant]
     Indication: PAIN MANAGEMENT
     Route: 048
  13. MIRTAZAPINE [Concomitant]
     Indication: LOCAL ANTIBACTERIAL THERAPY
     Dosage: AS NEEDED
     Route: 061
  14. TOPROL-XL [Concomitant]
     Indication: HEART RATE IRREGULAR
     Route: 048
  15. TOPROL-XL [Concomitant]
     Indication: TACHYCARDIA
     Route: 048

REACTIONS (6)
  - BARRETT'S OESOPHAGUS [None]
  - BLOOD TRIGLYCERIDES ABNORMAL [None]
  - COLONIC POLYP [None]
  - DRUG SCREEN POSITIVE [None]
  - FUNGAL INFECTION [None]
  - GASTRITIS [None]
